FAERS Safety Report 13159992 (Version 1)
Quarter: 2017Q1

REPORT INFORMATION
  Report Type: Report from Study
  Country: None (occurrence: CH)
  Receive Date: 20170127
  Receipt Date: 20170127
  Transmission Date: 20170428
  Serious: Yes (Hospitalization)
  Sender: FDA-Public Use
  Company Number: CH-ABBVIE-17P-151-1855289-00

PATIENT
  Sex: Male

DRUGS (1)
  1. DUODOPA [Suspect]
     Active Substance: CARBIDOPA\LEVODOPA
     Indication: PARKINSON^S DISEASE
     Dosage: MORNING DOSE: 8.5ML, CONTINUOUS RATE: 2.8ML/H, EXTRA DOSE: 1.0ML
     Route: 050
     Dates: start: 20161005

REACTIONS (3)
  - Hallucination [Unknown]
  - Aortic dissection [Unknown]
  - Confusional state [Unknown]
